FAERS Safety Report 21326883 (Version 1)
Quarter: 2022Q3

REPORT INFORMATION
  Report Type: Spontaneous
  Country: CH (occurrence: CH)
  Receive Date: 20220913
  Receipt Date: 20220913
  Transmission Date: 20221027
  Serious: Yes (Life-Threatening, Hospitalization)
  Sender: FDA-Public Use
  Company Number: CH-JNJFOC-20210906689

PATIENT
  Age: 38 Year
  Sex: Male
  Weight: 50 kg

DRUGS (13)
  1. STELARA [Suspect]
     Active Substance: USTEKINUMAB
     Indication: Crohn^s disease
     Dates: start: 20170816
  2. STELARA [Suspect]
     Active Substance: USTEKINUMAB
     Route: 058
     Dates: start: 20180110
  3. STELARA [Suspect]
     Active Substance: USTEKINUMAB
     Route: 058
     Dates: start: 20180209, end: 20181227
  4. STELARA [Suspect]
     Active Substance: USTEKINUMAB
     Route: 058
     Dates: start: 20200306
  5. STELARA [Suspect]
     Active Substance: USTEKINUMAB
     Dates: start: 20181126
  6. STELARA [Suspect]
     Active Substance: USTEKINUMAB
     Dates: start: 20181227
  7. STELARA [Suspect]
     Active Substance: USTEKINUMAB
     Dates: end: 20191112
  8. STELARA [Suspect]
     Active Substance: USTEKINUMAB
     Route: 058
     Dates: start: 20200529
  9. STELARA [Suspect]
     Active Substance: USTEKINUMAB
     Route: 058
     Dates: start: 20210519
  10. XELJANZ [Suspect]
     Active Substance: TOFACITINIB CITRATE
     Indication: Crohn^s disease
     Dosage: FOR 6 WEEKS
     Route: 065
     Dates: start: 20191022, end: 202108
  11. XELJANZ [Suspect]
     Active Substance: TOFACITINIB CITRATE
     Route: 065
     Dates: start: 20191122, end: 20191222
  12. XELJANZ [Suspect]
     Active Substance: TOFACITINIB CITRATE
     Route: 065
     Dates: start: 20210309
  13. AZATHIOPRINE [Concomitant]
     Active Substance: AZATHIOPRINE
     Indication: Product used for unknown indication
     Route: 065
     Dates: end: 20191022

REACTIONS (9)
  - Lymphoma [Unknown]
  - Small intestinal stenosis [Unknown]
  - Subileus [Unknown]
  - Off label use [Unknown]
  - Product use issue [Unknown]
  - Lymphopenia [Recovered/Resolved]
  - Drug level increased [Unknown]
  - Otitis media [Unknown]
  - Rash [Unknown]

NARRATIVE: CASE EVENT DATE: 20180209
